FAERS Safety Report 8200813 (Version 10)
Quarter: 2015Q4

REPORT INFORMATION
  Report Type: Spontaneous
  Country: US (occurrence: US)
  Receive Date: 20111026
  Receipt Date: 20151027
  Transmission Date: 20160305
  Serious: Yes (Hospitalization, Other)
  Sender: FDA-Public Use
  Company Number: US-MERCK-1110USA03835

PATIENT
  Sex: Female
  Weight: 73.94 kg

DRUGS (3)
  1. FOSAMAX [Suspect]
     Active Substance: ALENDRONATE SODIUM
     Indication: OSTEOPOROSIS
     Dosage: 10 MG, UNK
     Route: 048
     Dates: start: 20080520, end: 20080923
  2. FOSAMAX [Suspect]
     Active Substance: ALENDRONATE SODIUM
     Indication: OSTEOPOROSIS
     Dosage: 10 MG, QD
     Route: 048
     Dates: start: 200511, end: 201012
  3. FOSAMAX [Suspect]
     Active Substance: ALENDRONATE SODIUM
     Dosage: 70 MG, UNK
     Route: 048
     Dates: start: 20100203, end: 20101106

REACTIONS (76)
  - Carotid artery occlusion [Unknown]
  - Dyspnoea [Unknown]
  - Femur fracture [Not Recovered/Not Resolved]
  - Hypertension [Not Recovered/Not Resolved]
  - Pulmonary granuloma [Unknown]
  - Musculoskeletal disorder [Unknown]
  - Crying [Unknown]
  - Oesophagitis [Unknown]
  - Arthralgia [Unknown]
  - Asthenia [Unknown]
  - Hiatus hernia [Unknown]
  - Granulomatous liver disease [Unknown]
  - Diverticulum intestinal [Unknown]
  - Emphysema [Unknown]
  - Haemorrhagic anaemia [Unknown]
  - Cardiac failure congestive [Unknown]
  - Anaemia [Unknown]
  - Fall [Unknown]
  - Medical device site infection [Unknown]
  - Arteriosclerosis [Unknown]
  - Gastrooesophageal reflux disease [Unknown]
  - Gastritis [Unknown]
  - Interstitial lung disease [Unknown]
  - Inguinal hernia [Unknown]
  - Coronary artery disease [Unknown]
  - Adverse event [Unknown]
  - Blood cholesterol increased [Not Recovered/Not Resolved]
  - Cerebral arteriosclerosis [Unknown]
  - Herpes zoster [Unknown]
  - Dyslipidaemia [Unknown]
  - Osteoarthritis [Unknown]
  - Ilium fracture [Unknown]
  - Oedema peripheral [Unknown]
  - Aortic valve calcification [Unknown]
  - Cardiomegaly [Unknown]
  - Constipation [Unknown]
  - Chronic obstructive pulmonary disease [Unknown]
  - Kyphosis [Unknown]
  - Anxiety [Unknown]
  - Hypothyroidism [Unknown]
  - Headache [Unknown]
  - Lacunar infarction [Unknown]
  - Mitral valve calcification [Unknown]
  - Calcium deficiency [Unknown]
  - Excoriation [Unknown]
  - Scar [Unknown]
  - Rectal haemorrhage [Recovered/Resolved]
  - Presyncope [Unknown]
  - Pneumonia [Unknown]
  - Pulmonary embolism [Unknown]
  - Upper gastrointestinal haemorrhage [Unknown]
  - Bronchitis chronic [Unknown]
  - Bradycardia [Unknown]
  - Cerebral small vessel ischaemic disease [Unknown]
  - Spinal compression fracture [Unknown]
  - Blood thyroid stimulating hormone increased [Unknown]
  - Fatigue [Unknown]
  - Fall [Unknown]
  - Pubis fracture [Unknown]
  - Pubis fracture [Recovered/Resolved]
  - Bone fragmentation [Unknown]
  - Back pain [Not Recovered/Not Resolved]
  - Gastric ulcer [Unknown]
  - Joint swelling [Unknown]
  - Alveolitis [Unknown]
  - Transient ischaemic attack [Unknown]
  - Fall [Unknown]
  - Cardiac failure congestive [Unknown]
  - Cardiomegaly [Unknown]
  - Visual impairment [Unknown]
  - Dizziness [Unknown]
  - Aortic arteriosclerosis [Unknown]
  - Medical device site inflammation [Unknown]
  - Hand fracture [Unknown]
  - Injury [Unknown]
  - Arthritis [Not Recovered/Not Resolved]

NARRATIVE: CASE EVENT DATE: 2005
